FAERS Safety Report 6946411-1 (Version None)
Quarter: 2010Q3

REPORT INFORMATION
  Report Type: 
  Country: None (occurrence: None)
  Receive Date: 20100827
  Receipt Date: 20100816
  Transmission Date: 20110219
  Serious: Yes (Hospitalization)
  Sender: FDA-Public Use
  Company Number: US-ELI_LILLY_AND_COMPANY-US201008004945

PATIENT
  Sex: Female

DRUGS (9)
  1. FORTEO [Suspect]
     Indication: OSTEOPOROSIS
     Dosage: 20 UG, DAILY (1/D)
     Dates: start: 20100805, end: 20100812
  2. PROTONIX [Concomitant]
     Dosage: UNK, DAILY (1/D)
  3. IMDUR [Concomitant]
     Dosage: UNK, DAILY (1/D)
  4. ASPIRIN [Concomitant]
     Dosage: 81 MG, DAILY (1/D)
  5. METOPROLOL [Concomitant]
     Dosage: 12.5 MG, 2/D
  6. ZOLOFT [Concomitant]
     Dosage: 50 MG, DAILY (1/D)
  7. SYNTHROID [Concomitant]
     Dosage: 1 MG, DAILY (1/D)
  8. MEGACE [Concomitant]
     Dosage: UNK, DAILY (1/D)
  9. CALCIUM CARBONATE [Concomitant]
     Dosage: UNK, DAILY (1/D)

REACTIONS (8)
  - ASTHENIA [None]
  - BALANCE DISORDER [None]
  - BLOOD CALCIUM INCREASED [None]
  - CONSTIPATION [None]
  - DECREASED APPETITE [None]
  - DIZZINESS [None]
  - FATIGUE [None]
  - NAUSEA [None]
